FAERS Safety Report 7717443-0 (Version None)
Quarter: 2011Q3

REPORT INFORMATION
  Report Type: 
  Country: None (occurrence: None)
  Receive Date: 20110830
  Receipt Date: 20110816
  Transmission Date: 20111222
  Serious: Yes (Death, Hospitalization, Other)
  Sender: FDA-Public Use
  Company Number: DE-UCBSA-038189

PATIENT
  Sex: Female

DRUGS (5)
  1. VALPROATE SODIUM [Concomitant]
     Dates: start: 20100101, end: 20100101
  2. KEPPRA [Suspect]
     Dosage: 2 X 1000 MG
     Dates: start: 20100917
  3. KEPPRA [Suspect]
     Dosage: (750-0-1000) MG FOR 2 WEEKS
     Dates: start: 20110105
  4. VALPROATE SODIUM [Concomitant]
     Dosage: 800 MG
     Dates: start: 20100101
  5. KEPPRA [Suspect]
     Indication: EPILEPSY
     Dosage: 2 X 1500 MG
     Dates: start: 20100101, end: 20100101

REACTIONS (21)
  - SPEECH DISORDER [None]
  - FEELING ABNORMAL [None]
  - IRRITABILITY [None]
  - STRESS [None]
  - GRAND MAL CONVULSION [None]
  - HEADACHE [None]
  - TREMOR [None]
  - CONVULSION [None]
  - SCHIZOPHRENIFORM DISORDER [None]
  - FATIGUE [None]
  - DIPLOPIA [None]
  - BRADYPHRENIA [None]
  - ACNE [None]
  - WEIGHT INCREASED [None]
  - MEMORY IMPAIRMENT [None]
  - SOMNOLENCE [None]
  - DEATH [None]
  - DISTURBANCE IN ATTENTION [None]
  - WEIGHT DECREASED [None]
  - VOMITING [None]
  - DIZZINESS [None]
